FAERS Safety Report 10592349 (Version 5)
Quarter: 2018Q1

REPORT INFORMATION
  Report Type: Report from Study
  Country: US (occurrence: US)
  Receive Date: 20141119
  Receipt Date: 20180125
  Transmission Date: 20180508
  Serious: Yes (Hospitalization, Other)
  Sender: FDA-Public Use
  Company Number: US-ROCHE-1492808

PATIENT
  Age: 4 Year
  Sex: Male
  Weight: 25.88 kg

DRUGS (8)
  1. XOPENEX [Concomitant]
     Active Substance: LEVALBUTEROL HYDROCHLORIDE
     Dosage: 0.63 MG/3 ML INHALATION SOLUTION
     Route: 065
  2. AMOXICILLIN. [Concomitant]
     Active Substance: AMOXICILLIN
     Dosage: 400MG/5ML
     Route: 048
  3. NUTROPIN AQ [Suspect]
     Active Substance: SOMATROPIN
     Indication: GROWTH HORMONE DEFICIENCY
     Route: 058
     Dates: start: 20140101
  4. FLOVENT HFA [Concomitant]
     Active Substance: FLUTICASONE PROPIONATE
     Dosage: 44MCG/INH INHALATION AEROSOL, 2 PUFF EVERY NIGHT AT BEDTIME, 1 EACH
     Route: 065
  5. BUDESONIDE. [Concomitant]
     Active Substance: BUDESONIDE
     Dosage: 0.5 MG/2ML INHALATION SUSPENSION, 0.5 MG 2 ML, NEBULIZED, 120 ML
     Route: 065
  6. VITAMIN B12 [Concomitant]
     Active Substance: CYANOCOBALAMIN
  7. GLUCAGON. [Concomitant]
     Active Substance: GLUCAGON
     Route: 048
  8. FISH OIL [Concomitant]
     Active Substance: FISH OIL
     Route: 048

REACTIONS (5)
  - Vasodilatation [Not Recovered/Not Resolved]
  - Pulmonary hypertension [Unknown]
  - Hypoglycaemia [Unknown]
  - Aortic dilatation [Unknown]
  - Lung disorder [Unknown]

NARRATIVE: CASE EVENT DATE: 201404
